FAERS Safety Report 6964642-1 (Version None)
Quarter: 2010Q3

REPORT INFORMATION
  Report Type: 
  Country: None (occurrence: None)
  Receive Date: 20100903
  Receipt Date: 20100826
  Transmission Date: 20110219
  Serious: Yes (Other)
  Sender: FDA-Public Use
  Company Number: US-ASTRAZENECA-2007UW25121

PATIENT
  Age: 66 Year
  Sex: Female
  Weight: 108 kg

DRUGS (22)
  1. SEROQUEL [Suspect]
     Indication: ANXIETY
     Route: 048
     Dates: start: 20040719, end: 20070101
  2. SEROQUEL [Suspect]
     Indication: DEPRESSION
     Route: 048
     Dates: start: 20040719, end: 20070101
  3. SEROQUEL [Suspect]
     Route: 048
     Dates: start: 20060501, end: 20070101
  4. SEROQUEL [Suspect]
     Route: 048
     Dates: start: 20060501, end: 20070101
  5. WARFARIN SODIUM [Concomitant]
     Dosage: 1 MG - 5 MG
     Route: 048
  6. FOSAMAX PLUS D [Concomitant]
     Dosage: 70 MG - 280 MG
     Route: 048
  7. VYTORIN [Concomitant]
     Dosage: 10 MG - 40 MG
     Route: 065
  8. ATENOLOL [Concomitant]
     Route: 048
  9. OMEPRAZOLE [Concomitant]
     Route: 048
  10. PERPHENAZINE AND AMITRIPTYLINE HCL [Concomitant]
     Dosage: 2 MG - 10 MG
     Route: 048
  11. LISINOPRIL [Concomitant]
     Route: 065
  12. FEXOFENADINE HCL [Concomitant]
     Route: 065
  13. ZOCOR [Concomitant]
     Route: 065
  14. ACETAMINOPHEN AND HYDROCODONE BITARTRATE [Concomitant]
     Dosage: 7.5 MG - 750 MG
     Route: 065
  15. SYNTHROID [Concomitant]
     Dosage: 175 MCG - 200 MCG
     Route: 065
  16. XANAX [Concomitant]
     Route: 065
     Dates: start: 20041217
  17. RISPERDAL [Concomitant]
     Indication: ANXIETY
     Route: 065
     Dates: start: 20070101, end: 20070101
  18. RISPERDAL [Concomitant]
     Indication: DEPRESSION
     Route: 065
     Dates: start: 20070101, end: 20070101
  19. FLUTICASONE PROPIONATE [Concomitant]
     Route: 065
  20. CYCLOBENZAPRINE [Concomitant]
     Route: 048
  21. HALDOL [Concomitant]
     Dates: start: 19800101
  22. TRIAVIL [Concomitant]
     Dates: start: 20041022

REACTIONS (21)
  - ARTERIOSCLEROSIS CORONARY ARTERY [None]
  - ARTHROPATHY [None]
  - BACK DISORDER [None]
  - BLOOD TRIGLYCERIDES INCREASED [None]
  - CHEST PAIN [None]
  - CHONDROMALACIA [None]
  - DIABETIC COMPLICATION [None]
  - FATIGUE [None]
  - HEADACHE [None]
  - HYPOGLYCAEMIA [None]
  - MUSCLE SPASMS [None]
  - OPEN ANGLE GLAUCOMA [None]
  - OSTEOPOROSIS [None]
  - ROTATOR CUFF SYNDROME [None]
  - SINUSITIS [None]
  - SPINAL DISORDER [None]
  - TENDON RUPTURE [None]
  - TENDONITIS [None]
  - TYPE 2 DIABETES MELLITUS [None]
  - UPPER RESPIRATORY TRACT INFECTION [None]
  - VERTIGO [None]
